FAERS Safety Report 5491928-2 (Version None)
Quarter: 2007Q4

REPORT INFORMATION
  Report Type: 
  Country: None (occurrence: None)
  Receive Date: 20071018
  Receipt Date: 20071018
  Transmission Date: 20080405
  Serious: Yes (Life-Threatening, Hospitalization)
  Sender: FDA-Public Use
  Company Number: None

PATIENT
  Age: 37 Year
  Sex: Female
  Weight: 87.0906 kg

DRUGS (1)
  1. SINUS CONGESTION + PAIN RAPID RE       TYLENOL [Suspect]
     Indication: NASOPHARYNGITIS
     Dosage: 2   EVERY 4 HOURS   PO
     Route: 048
     Dates: start: 20070920, end: 20070924

REACTIONS (2)
  - CEREBROVASCULAR ACCIDENT [None]
  - HAEMORRHAGIC STROKE [None]
